FAERS Safety Report 5096387-X (Version None)
Quarter: 2006Q3

REPORT INFORMATION
  Report Type: 
  Country: None (occurrence: None)
  Receive Date: 20060831
  Receipt Date: 20060817
  Transmission Date: 20061208
  Serious: Yes (Death)
  Sender: FDA-Public Use
  Company Number: 2006-04549

PATIENT
  Age: 53 Year
  Sex: Female

DRUGS (10)
  1. DOXYCYCLINE HYCLATE [Suspect]
     Indication: HUMAN EHRLICHIOSIS
     Dosage: 1 TABLET, BID, ORAL
     Route: 048
     Dates: start: 20060710, end: 20060802
  2. NEXIUM [Suspect]
     Indication: DRUG USE FOR UNKNOWN INDICATION
     Dosage: 40 MG, DAILY, ORAL
     Route: 048
     Dates: start: 20060731
  3. XOPENEX [Concomitant]
  4. PREDNISONE TAB [Concomitant]
  5. PREMPRO [Concomitant]
  6. ANTIBIOTICS [Concomitant]
  7. ADVAIR DISKUS (SALMETEROL XINAFOATE, FLUTICASONE PROPIONATE) [Concomitant]
  8. SINGULAIR [Concomitant]
  9. ALBUTEROL [Concomitant]
  10. ALLEGRA [Concomitant]

REACTIONS (3)
  - ASTHMA [None]
  - CONDITION AGGRAVATED [None]
  - SUDDEN DEATH [None]
